FAERS Safety Report 14610457 (Version 2)
Quarter: 2018Q2

REPORT INFORMATION
  Report Type: Report from Study
  Country: DE (occurrence: DE)
  Receive Date: 20180307
  Receipt Date: 20180415
  Transmission Date: 20180711
  Serious: Yes (Hospitalization)
  Sender: FDA-Public Use
  Company Number: PHHY2018DE032599

PATIENT
  Age: 54 Year
  Sex: Female
  Weight: 116 kg

DRUGS (1)
  1. MTX HEXAL [Suspect]
     Active Substance: METHOTREXATE SODIUM
     Indication: PSORIATIC ARTHROPATHY
     Dosage: 15 MG, QW
     Route: 048
     Dates: start: 201605, end: 201704

REACTIONS (8)
  - Skin disorder [Unknown]
  - Skin maceration [Not Recovered/Not Resolved]
  - Fungal infection [Not Recovered/Not Resolved]
  - Small cell lung cancer [Not Recovered/Not Resolved]
  - Arthropathy [Unknown]
  - Eczema [Not Recovered/Not Resolved]
  - Metastases to bone [Not Recovered/Not Resolved]
  - Psoriatic arthropathy [Not Recovered/Not Resolved]

NARRATIVE: CASE EVENT DATE: 201706
